FAERS Safety Report 6913361-6 (Version None)
Quarter: 2010Q3

REPORT INFORMATION
  Report Type: 
  Country: None (occurrence: None)
  Receive Date: 20100809
  Receipt Date: 20100726
  Transmission Date: 20110219
  Serious: Yes (Hospitalization, Other)
  Sender: FDA-Public Use
  Company Number: JP-JNJFOC-20100604933

PATIENT
  Sex: Female
  Weight: 50 kg

DRUGS (19)
  1. REMICADE [Suspect]
     Indication: RHEUMATOID ARTHRITIS
     Route: 042
  2. REMICADE [Suspect]
     Dosage: 4 INFUSIONS ON UNSPECIFIED DATES
     Route: 042
  3. REMICADE [Suspect]
     Route: 042
  4. REMICADE [Suspect]
     Dosage: 3 INFUSIONS ON UNSPECIFIED DATES
     Route: 042
  5. REMICADE [Suspect]
     Route: 042
  6. REMICADE [Suspect]
     Route: 042
  7. REMICADE [Suspect]
     Dosage: 17TH INFUSION
     Route: 042
  8. REMICADE [Suspect]
     Dosage: 5 INFUSIONS ON UNSPECIFIED DATES
     Route: 042
  9. METOLATE [Suspect]
     Indication: RHEUMATOID ARTHRITIS
     Route: 048
  10. BREDININ [Suspect]
     Indication: RHEUMATOID ARTHRITIS
     Route: 048
  11. PREDNISOLONE [Suspect]
     Indication: RHEUMATOID ARTHRITIS
     Route: 048
  12. AMLODIPINE BESYLATE [Concomitant]
     Indication: HYPERTENSION
     Route: 048
  13. VOLTAREN [Concomitant]
     Indication: RHEUMATOID ARTHRITIS
     Dosage: ROUTE: OD
  14. EVISTA [Concomitant]
     Indication: OSTEOPOROSIS
     Route: 048
  15. CELECOX [Concomitant]
     Indication: RHEUMATOID ARTHRITIS
     Route: 048
  16. CRESTOR [Concomitant]
     Indication: HYPERLIPIDAEMIA
     Route: 048
  17. MYSLEE [Concomitant]
     Indication: INSOMNIA
     Route: 048
  18. TAKEPRON [Concomitant]
     Indication: PROPHYLAXIS
     Route: 048
  19. AMARYL [Concomitant]
     Indication: DIABETES MELLITUS
     Route: 048

REACTIONS (1)
  - PNEUMOCYSTIS JIROVECI PNEUMONIA [None]
